FAERS Safety Report 9611475 (Version 2)
Quarter: 2013Q4

REPORT INFORMATION
  Report Type: Spontaneous
  Country: CA (occurrence: CA)
  Receive Date: 20131010
  Receipt Date: 20131018
  Transmission Date: 20140711
  Serious: Yes (Life-Threatening, Hospitalization, Other)
  Sender: FDA-Public Use
  Company Number: CA-ASTRAZENECA-2013SE72980

PATIENT
  Age: 70 Year
  Sex: Female
  Weight: 80 kg

DRUGS (5)
  1. ATACAND PLUS [Suspect]
     Indication: HYPERTENSION
     Dosage: 8 + 12.5 MG, DAILY
     Route: 048
     Dates: start: 2008
  2. ATACAND PLUS [Suspect]
     Indication: HYPERTENSION
     Dosage: 8 + 6.25 MG, DAILY
     Route: 048
     Dates: start: 2008
  3. ATACAND [Suspect]
     Route: 048
  4. PANTOLOC [Concomitant]
  5. FERROUS FUMERATE [Concomitant]

REACTIONS (5)
  - Angina unstable [Recovering/Resolving]
  - Blood phosphorus increased [Not Recovered/Not Resolved]
  - Post viral fatigue syndrome [Unknown]
  - Bone neoplasm [Recovered/Resolved]
  - Iron deficiency [Unknown]
